FAERS Safety Report 6656764-X (Version None)
Quarter: 2010Q1

REPORT INFORMATION
  Report Type: 
  Country: None (occurrence: None)
  Receive Date: 20100317
  Receipt Date: 20100302
  Transmission Date: 20100710
  Serious: No
  Sender: FDA-Public Use
  Company Number: US-144942

PATIENT
  Sex: Male
  Weight: 82.7 kg

DRUGS (11)
  1. WINRHO SDF LIQUID [Suspect]
     Indication: IDIOPATHIC THROMBOCYTOPENIC PURPURA
     Dosage: 72.55 ?G/KG INTRAVENOUS (NOT OTHERWISE SPECIFIED)
     Route: 042
     Dates: start: 20100211, end: 20100211
  2. AMLODIPINE BESYLATE [Concomitant]
  3. ASA (ASA) [Concomitant]
  4. B COMPLEX (B COMPLEX) [Concomitant]
  5. LANTUS (LANTUS) [Concomitant]
  6. LISINOPRIL [Concomitant]
  7. METFORMIN HCL (METFORMIN HCL) [Concomitant]
  8. METOPROLOL (METOPROLO) [Concomitant]
  9. PLAVIX [Concomitant]
  10. PREDNISONE TAB [Concomitant]
  11. SIMVASTATIN [Concomitant]

REACTIONS (32)
  - ASTHENIA [None]
  - BACK PAIN [None]
  - BLOOD CHLORIDE DECREASED [None]
  - BLOOD GLUCOSE INCREASED [None]
  - BLOOD PRESSURE DECREASED [None]
  - BLOOD SODIUM DECREASED [None]
  - BOWEL MOVEMENT IRREGULARITY [None]
  - CHEST DISCOMFORT [None]
  - CHEST PAIN [None]
  - CHILLS [None]
  - CONSTIPATION [None]
  - CORONARY ARTERY DISEASE [None]
  - DECREASED APPETITE [None]
  - DIABETES MELLITUS INADEQUATE CONTROL [None]
  - DIARRHOEA [None]
  - DIZZINESS [None]
  - DYSPHAGIA [None]
  - ERUCTATION [None]
  - HAEMOLYSIS [None]
  - HEART RATE DECREASED [None]
  - HYPOAESTHESIA [None]
  - HYPOTENSION [None]
  - IDIOPATHIC THROMBOCYTOPENIC PURPURA [None]
  - INFUSION RELATED REACTION [None]
  - NORMOCHROMIC NORMOCYTIC ANAEMIA [None]
  - OVERDOSE [None]
  - PAIN IN EXTREMITY [None]
  - PERIPHERAL VASCULAR DISORDER [None]
  - RHINORRHOEA [None]
  - URINE ABNORMALITY [None]
  - VISUAL ACUITY REDUCED [None]
  - WHITE BLOOD CELL COUNT INCREASED [None]
